FAERS Safety Report 18698242 (Version 1)
Quarter: 2021Q1

REPORT INFORMATION
  Report Type: Spontaneous
  Country: US (occurrence: US)
  Receive Date: 20210104
  Receipt Date: 20210104
  Transmission Date: 20210419
  Serious: No
  Sender: FDA-Public Use
  Company Number: US-TAKEDA-2021TUS000226

PATIENT
  Age: 49 Year
  Sex: Male
  Weight: 150 kg

DRUGS (1)
  1. TAKHZYRO [Suspect]
     Active Substance: LANADELUMAB-FLYO
     Indication: HEREDITARY ANGIOEDEMA
     Dosage: 2 DOSAGE FORM
     Route: 065

REACTIONS (1)
  - Hereditary angioedema [Unknown]
